FAERS Safety Report 10021015 (Version 1)
Quarter: 2014Q1

REPORT INFORMATION
  Report Type: Spontaneous
  Country: US (occurrence: None)
  Receive Date: 20140318
  Receipt Date: 20140318
  Transmission Date: 20141002
  Serious: Yes (Other)
  Sender: FDA-Public Use
  Company Number: None

PATIENT
  Age: 29 Year
  Sex: Female

DRUGS (1)
  1. RIBAVIRIN [Suspect]
     Indication: HEPATITIS
     Route: 048
     Dates: start: 201402

REACTIONS (4)
  - Headache [None]
  - Nausea [None]
  - Fatigue [None]
  - Abdominal discomfort [None]
